FAERS Safety Report 21690741 (Version 2)
Quarter: 2022Q4

REPORT INFORMATION
  Report Type: Report from Study
  Country: IT (occurrence: IT)
  Receive Date: 20221206
  Receipt Date: 20221220
  Transmission Date: 20230113
  Serious: Yes (Hospitalization)
  Sender: FDA-Public Use
  Company Number: IT-ABBVIE-4225820

PATIENT
  Age: 66 Year
  Sex: Female

DRUGS (2)
  1. CARBIDOPA\LEVODOPA [Suspect]
     Active Substance: CARBIDOPA\LEVODOPA
     Indication: Parkinson^s disease
     Dosage: DAILY DOSE: 662  MG; PUMP SETTING: MD: 2,5+3 CR: 1,9 (14H), ED: 2
     Route: 050
     Dates: start: 20201112
  2. CARBIDOPA\LEVODOPA [Suspect]
     Active Substance: CARBIDOPA\LEVODOPA

REACTIONS (2)
  - Off label use [Recovering/Resolving]
  - Obstruction [Recovered/Resolved]

NARRATIVE: CASE EVENT DATE: 20221205
